FAERS Safety Report 6740065-5 (Version None)
Quarter: 2010Q2

REPORT INFORMATION
  Report Type: 
  Country: None (occurrence: None)
  Receive Date: 20100525
  Receipt Date: 20100217
  Transmission Date: 20101027
  Serious: No
  Sender: FDA-Public Use
  Company Number: A0640773A

PATIENT
  Age: 55 Year
  Sex: Female

DRUGS (6)
  1. BACTROBAN [Suspect]
     Indication: NASAL DRYNESS
     Dosage: 1APP FIVE TIMES PER DAY
     Route: 045
     Dates: start: 20070101
  2. OMEPRAZOLE [Concomitant]
  3. NULEV [Concomitant]
  4. PROVERA [Concomitant]
  5. ANTISPASMODIC [Concomitant]
  6. SALINE [Concomitant]

REACTIONS (6)
  - DRUG EFFECT DECREASED [None]
  - DRUG INEFFECTIVE [None]
  - MEDICATION RESIDUE [None]
  - NASAL DISCOMFORT [None]
  - PRODUCT QUALITY ISSUE [None]
  - THERAPEUTIC RESPONSE UNEXPECTED [None]
